FAERS Safety Report 6042023-5 (Version None)
Quarter: 2009Q1

REPORT INFORMATION
  Report Type: 
  Country: None (occurrence: None)
  Receive Date: 20090116
  Receipt Date: 20090108
  Transmission Date: 20090719
  Serious: Yes (Hospitalization)
  Sender: FDA-Public Use
  Company Number: US-MERCK-0901USA01586

PATIENT
  Sex: Male

DRUGS (1)
  1. CODELSOL [Suspect]
     Indication: ULCERATIVE KERATITIS
     Route: 061

REACTIONS (1)
  - CORNEAL SCAR [None]
